FAERS Safety Report 25898511 (Version 2)
Quarter: 2025Q4

REPORT INFORMATION
  Report Type: Report from Study
  Country: US (occurrence: US)
  Receive Date: 20251009
  Receipt Date: 20251022
  Transmission Date: 20260118
  Serious: Yes (Hospitalization, Other)
  Sender: ABBVIE
  Company Number: US-ABBVIE-6493405

PATIENT
  Age: 76 Year
  Sex: Male
  Weight: 113 kg

DRUGS (1)
  1. SKYRIZI [Suspect]
     Active Substance: RISANKIZUMAB-RZAA
     Indication: Psoriasis
     Dosage: SOLUTION FOR INJECTION IN PRE-FILLED PEN?FORM STRENGTH 150 MILLIGRAM?STOP DATE TEXT: LATE 2024 OR...
     Route: 058
     Dates: start: 2022, end: 2024

REACTIONS (7)
  - Hospice care [Not Recovered/Not Resolved]
  - Left atrial appendage closure implant [Recovered/Resolved]
  - Psoriasis [Not Recovered/Not Resolved]
  - Ammonia increased [Recovering/Resolving]
  - Hepatic cirrhosis [Not Recovered/Not Resolved]
  - Hepatic cancer [Not Recovered/Not Resolved]
  - Unresponsive to stimuli [Recovered/Resolved]

NARRATIVE: CASE EVENT DATE: 20220101
